FAERS Safety Report 17833489 (Version 1)
Quarter: 2020Q2

REPORT INFORMATION
  Report Type: Spontaneous
  Country: US (occurrence: US)
  Receive Date: 20200527
  Receipt Date: 20200527
  Transmission Date: 20200714
  Serious: Yes (Death)
  Sender: FDA-Public Use
  Company Number: None

PATIENT
  Age: 83 Year
  Sex: Female
  Weight: 79.3 kg

DRUGS (22)
  1. METOPROLOL TARTRATE. [Concomitant]
     Active Substance: METOPROLOL TARTRATE
     Dates: start: 20200516, end: 20200524
  2. METRONIDAZOLE. [Concomitant]
     Active Substance: METRONIDAZOLE
     Dates: start: 20200522, end: 20200524
  3. MODAFINIL. [Concomitant]
     Active Substance: MODAFINIL
     Dates: start: 20200518, end: 20200524
  4. INSULIN ( LISPRO, REGULAR) [Concomitant]
     Dates: start: 20200516, end: 20200524
  5. SODIUM CHLORIDE 0.9% INFUSION [Concomitant]
     Dates: start: 20200515, end: 20200516
  6. REMDESIVIR. [Suspect]
     Active Substance: REMDESIVIR
     Indication: COVID-19
     Route: 040
     Dates: start: 20200519, end: 20200523
  7. MOMETASONE/FORMOTEROL [Concomitant]
     Dates: start: 20200516, end: 20200524
  8. POTASSIUM CHLORIDE. [Concomitant]
     Active Substance: POTASSIUM CHLORIDE
     Dates: start: 20200517, end: 20200523
  9. CEFTRIAXONE. [Concomitant]
     Active Substance: CEFTRIAXONE
     Dates: start: 20200516, end: 20200518
  10. APIXABAN [Concomitant]
     Active Substance: APIXABAN
     Dates: start: 20200516, end: 20200519
  11. LATANOPROST DROPS [Concomitant]
     Dates: start: 20200518, end: 20200524
  12. MAGNESIUM SULFATE. [Concomitant]
     Active Substance: MAGNESIUM SULFATE
     Dates: start: 20200516, end: 20200523
  13. VANCOMYCIN [Concomitant]
     Active Substance: VANCOMYCIN
     Dates: start: 20200516, end: 20200522
  14. ENOXAPARIN [Concomitant]
     Active Substance: ENOXAPARIN
     Dates: start: 20200516, end: 20200524
  15. LACTATED RINGERS SOLUTION [Concomitant]
     Active Substance: CALCIUM CHLORIDE\POTASSIUM CHLORIDE\SODIUM CHLORIDE\SODIUM LACTATE
     Dates: start: 20200516, end: 20200518
  16. MORPHINE [Concomitant]
     Active Substance: MORPHINE
     Dates: start: 20200519, end: 20200524
  17. SERTRALINE [Concomitant]
     Active Substance: SERTRALINE HYDROCHLORIDE
     Dates: start: 20200516, end: 20200524
  18. ACETAMINOPHEN. [Concomitant]
     Active Substance: ACETAMINOPHEN
     Dates: start: 20200515, end: 20200523
  19. CHLORHEXIDINE ORAL SOLUTION [Concomitant]
     Dates: start: 20200524, end: 20200524
  20. MONTELUKAST [Concomitant]
     Active Substance: MONTELUKAST SODIUM
     Dates: start: 20200516, end: 20200524
  21. FUROSEMIDE. [Concomitant]
     Active Substance: FUROSEMIDE
     Dates: start: 20200516, end: 20200522
  22. GABAPENTIN. [Concomitant]
     Active Substance: GABAPENTIN
     Dates: start: 20200516, end: 20200524

REACTIONS (4)
  - Malaise [None]
  - Pyrexia [None]
  - Acute hepatic failure [None]
  - Diarrhoea [None]

NARRATIVE: CASE EVENT DATE: 20200524
